FAERS Safety Report 4917689-0 (Version None)
Quarter: 2006Q1

REPORT INFORMATION
  Report Type: 
  Country: None (occurrence: None)
  Receive Date: 20060221
  Receipt Date: 20060120
  Transmission Date: 20060701
  Serious: Yes (Hospitalization)
  Sender: FDA-Public Use
  Company Number: JP-ROCHE-433339

PATIENT
  Age: 16 Year
  Sex: Female

DRUGS (4)
  1. TAMIFLU [Suspect]
     Route: 048
     Dates: start: 20060119, end: 20060119
  2. MUCODYNE [Concomitant]
     Route: 048
     Dates: start: 20060119, end: 20060120
  3. CLARITHROMYCIN [Concomitant]
     Dosage: NOTE: UNCERTAINTY
     Route: 048
     Dates: start: 20060119, end: 20060120
  4. ACETAMINOPHEN [Concomitant]
     Dosage: NOTE: UNCERTAINTY
     Route: 048
     Dates: start: 20060119, end: 20060120

REACTIONS (1)
  - ENTEROCOLITIS HAEMORRHAGIC [None]
